FAERS Safety Report 6930053-8 (Version None)
Quarter: 2010Q3

REPORT INFORMATION
  Report Type: 
  Country: None (occurrence: None)
  Receive Date: 20100818
  Receipt Date: 20091207
  Transmission Date: 20110219
  Serious: Yes (Hospitalization, Other)
  Sender: FDA-Public Use
  Company Number: FR-BAXTER-2009BH014362

PATIENT
  Age: 86 Year
  Sex: Female
  Weight: 60 kg

DRUGS (39)
  1. FEIBA [Suspect]
     Indication: MUSCLE HAEMORRHAGE
     Route: 042
     Dates: start: 20090710, end: 20090710
  2. FEIBA [Suspect]
     Indication: ACQUIRED HAEMOPHILIA
     Route: 042
     Dates: start: 20090710, end: 20090710
  3. FEIBA [Suspect]
     Indication: FACTOR VIII INHIBITION
     Route: 042
     Dates: start: 20090710, end: 20090710
  4. FEIBA [Suspect]
     Route: 042
     Dates: start: 20090711, end: 20090711
  5. FEIBA [Suspect]
     Route: 042
     Dates: start: 20090711, end: 20090711
  6. FEIBA [Suspect]
     Route: 042
     Dates: start: 20090711, end: 20090711
  7. FEIBA [Suspect]
     Route: 042
     Dates: start: 20090711, end: 20090711
  8. FEIBA [Suspect]
     Route: 042
     Dates: start: 20090711, end: 20090711
  9. FEIBA [Suspect]
     Route: 042
     Dates: start: 20090711, end: 20090711
  10. FEIBA [Suspect]
     Route: 042
     Dates: start: 20090711, end: 20090711
  11. FEIBA [Suspect]
     Route: 042
     Dates: start: 20090711, end: 20090711
  12. FEIBA [Suspect]
     Route: 042
     Dates: start: 20090711, end: 20090711
  13. FEIBA [Suspect]
     Route: 042
     Dates: start: 20090712, end: 20090713
  14. FEIBA [Suspect]
     Route: 042
     Dates: start: 20090712, end: 20090713
  15. FEIBA [Suspect]
     Route: 042
     Dates: start: 20090712, end: 20090713
  16. FEIBA [Suspect]
     Route: 042
     Dates: start: 20090714, end: 20090720
  17. FEIBA [Suspect]
     Route: 042
     Dates: start: 20090714, end: 20090720
  18. FEIBA [Suspect]
     Route: 042
     Dates: start: 20090714, end: 20090720
  19. NOVOSEVEN [Suspect]
     Indication: MUSCLE HAEMORRHAGE
     Route: 042
     Dates: start: 20090710, end: 20090713
  20. NOVOSEVEN [Suspect]
     Route: 042
     Dates: start: 20090709, end: 20090709
  21. CORTANCYL [Concomitant]
     Indication: HAEMOPHILIA
     Route: 048
     Dates: start: 20090710, end: 20090728
  22. LEVOTHYROXINE SODIUM [Concomitant]
     Indication: HYPOTHYROIDISM
     Route: 048
     Dates: end: 20090708
  23. CALCITRIOL [Concomitant]
     Indication: PRODUCT USED FOR UNKNOWN INDICATION
     Route: 048
     Dates: start: 20090710
  24. OMEPRAZOLE [Concomitant]
     Indication: PROPHYLAXIS AGAINST GASTROINTESTINAL ULCER
     Route: 048
     Dates: start: 20090709, end: 20090809
  25. SPECIAFOLDINE [Concomitant]
     Indication: ANAEMIA
     Route: 048
     Dates: start: 20090709, end: 20091207
  26. RITUXIMAB [Concomitant]
     Indication: IMMUNOSUPPRESSANT DRUG THERAPY
     Route: 042
     Dates: start: 20090710, end: 20090724
  27. BRIAZIDE [Concomitant]
     Indication: HYPERTENSION
     Route: 048
     Dates: end: 20090709
  28. LORAZEPAM [Concomitant]
     Route: 048
  29. MABTHERA [Concomitant]
     Indication: HAEMOPHILIA
     Dates: start: 20090710, end: 20090724
  30. POLARAMINE [Concomitant]
  31. DEXAMETHASONE [Concomitant]
  32. PARACETAMOL [Concomitant]
  33. CACIT D3 [Concomitant]
     Route: 048
     Dates: start: 20090709
  34. LEVOTHYROXINE SODIUM [Concomitant]
     Route: 048
     Dates: start: 20090709
  35. ACTONEL [Concomitant]
     Route: 048
     Dates: start: 20090709
  36. DIFFU K [Concomitant]
     Indication: PROPHYLAXIS
     Dates: start: 20090709, end: 20091206
  37. LASIX [Concomitant]
     Route: 048
     Dates: start: 20090709, end: 20090709
  38. RED BLOOD CELLS [Concomitant]
     Indication: HAEMORRHAGE
     Route: 042
     Dates: start: 20090709, end: 20090718
  39. NOROXIN [Concomitant]

REACTIONS (2)
  - DEEP VEIN THROMBOSIS [None]
  - THROMBOPHLEBITIS SUPERFICIAL [None]
